FAERS Safety Report 6533690-8 (Version None)
Quarter: 2010Q1

REPORT INFORMATION
  Report Type: 
  Country: None (occurrence: None)
  Receive Date: 20100111
  Receipt Date: 20100106
  Transmission Date: 20100710
  Serious: Yes (Death, Life-Threatening, Hospitalization, Other)
  Sender: FDA-Public Use
  Company Number: US-SANOFI-AVENTIS-F03200700138

PATIENT
  Age: 51 Year
  Sex: Female
  Weight: 63 kg

DRUGS (26)
  1. OXALIPLATIN [Suspect]
     Indication: COLORECTAL CANCER
     Route: 041
     Dates: start: 20060918, end: 20060918
  2. OXALIPLATIN [Suspect]
     Route: 041
     Dates: start: 20060530, end: 20060530
  3. INVESTIGATIONAL DRUG [Suspect]
     Indication: COLORECTAL CANCER
     Dosage: UNIT DOSE: 5 MG
     Route: 048
     Dates: start: 20060531, end: 20060928
  4. BEVACIZUMAB [Suspect]
     Indication: COLORECTAL CANCER
     Route: 042
     Dates: start: 20060918, end: 20060918
  5. BEVACIZUMAB [Suspect]
     Route: 042
     Dates: start: 20060530, end: 20060530
  6. FLUOROURACIL [Suspect]
     Indication: COLORECTAL CANCER
     Route: 042
     Dates: start: 20060920, end: 20060920
  7. FLUOROURACIL [Suspect]
     Route: 042
     Dates: start: 20061226, end: 20061226
  8. FLUOROURACIL [Suspect]
     Route: 042
     Dates: start: 20060530, end: 20060530
  9. FLUOROURACIL [Suspect]
     Route: 042
     Dates: start: 20061228, end: 20061228
  10. LEUCOVORIN CALCIUM [Suspect]
     Indication: COLORECTAL CANCER
     Route: 042
     Dates: start: 20060530, end: 20060530
  11. LEUCOVORIN CALCIUM [Suspect]
     Route: 042
     Dates: start: 20060620, end: 20060620
  12. LEUCOVORIN CALCIUM [Suspect]
     Route: 042
     Dates: start: 20060703, end: 20060703
  13. LEUCOVORIN CALCIUM [Suspect]
     Route: 042
     Dates: start: 20060717, end: 20060717
  14. LEUCOVORIN CALCIUM [Suspect]
     Route: 042
     Dates: start: 20060731, end: 20060731
  15. LEUCOVORIN CALCIUM [Suspect]
     Route: 042
     Dates: start: 20060814, end: 20060814
  16. LEUCOVORIN CALCIUM [Suspect]
     Route: 042
     Dates: start: 20060828, end: 20060828
  17. LEUCOVORIN CALCIUM [Suspect]
     Route: 042
     Dates: start: 20060918, end: 20060918
  18. LEUCOVORIN CALCIUM [Suspect]
     Route: 042
     Dates: end: 20061226
  19. LISINOPRIL [Concomitant]
     Route: 048
     Dates: start: 20060101
  20. METFORMIN HYDROCHLORIDE [Concomitant]
     Route: 048
     Dates: start: 20060717, end: 20060921
  21. PROTONIX [Concomitant]
     Route: 048
     Dates: start: 20060717
  22. ACETYLSALICYLIC ACID [Concomitant]
     Route: 048
     Dates: start: 20060719
  23. NORVASC [Concomitant]
     Indication: HYPERTENSION
     Route: 048
     Dates: start: 20060613, end: 20060911
  24. XANAX [Concomitant]
     Indication: ANXIETY
     Dates: start: 20040504
  25. COMPAZINE [Concomitant]
     Indication: NAUSEA
     Route: 048
     Dates: start: 20060531
  26. METOPROLOL [Concomitant]
     Indication: HYPERTENSION
     Dates: start: 20060610, end: 20060911

REACTIONS (2)
  - LIVER FUNCTION TEST ABNORMAL [None]
  - RESPIRATORY FAILURE [None]
